FAERS Safety Report 9310201 (Version 1)
Quarter: 2013Q2

REPORT INFORMATION
  Report Type: Spontaneous
  Country: GB (occurrence: GB)
  Receive Date: 20130527
  Receipt Date: 20130527
  Transmission Date: 20140414
  Serious: Yes (Hospitalization, Other)
  Sender: FDA-Public Use
  Company Number: GB-009507513-1304GBR013542

PATIENT
  Age: 68 Year
  Sex: Female
  Weight: 90 kg

DRUGS (1)
  1. FOSAMAX [Suspect]
     Indication: OSTEOPOROSIS
     Dosage: UNK, ONCE A WEEK
     Route: 048
     Dates: start: 20080114, end: 201301

REACTIONS (3)
  - Exostosis [Unknown]
  - Post procedural complication [Unknown]
  - Palpitations [Recovered/Resolved]
